FAERS Safety Report 5261882-7 (Version None)
Quarter: 2007Q1

REPORT INFORMATION
  Report Type: 
  Country: None (occurrence: None)
  Receive Date: 20070310
  Receipt Date: 20070228
  Transmission Date: 20070707
  Serious: No
  Sender: FDA-Public Use
  Company Number: 2006UW10791

PATIENT
  Sex: Male
  Weight: 75 kg

DRUGS (3)
  1. SEROQUEL [Suspect]
     Indication: DEPRESSION
     Route: 048
  2. ZYPREXA [Concomitant]
     Dosage: 10 TO 15 MG
     Dates: start: 20001226, end: 20010921
  3. GEODON [Concomitant]

REACTIONS (1)
  - DIABETES MELLITUS [None]
